FAERS Safety Report 12216752 (Version 1)
Quarter: 2016Q1

REPORT INFORMATION
  Report Type: Spontaneous
  Country: US (occurrence: US)
  Receive Date: 20160329
  Receipt Date: 20160329
  Transmission Date: 20160526
  Serious: No
  Sender: FDA-Public Use
  Company Number: US-PFIZER INC-2016138484

PATIENT
  Age: 53 Year
  Sex: Male
  Weight: 84 kg

DRUGS (3)
  1. CEPHALEXIN. [Concomitant]
     Active Substance: CEPHALEXIN
     Indication: ANTIBIOTIC THERAPY
     Dosage: UNK
     Dates: start: 20160215, end: 20160221
  2. ADVIL [Suspect]
     Active Substance: IBUPROFEN
     Indication: SWELLING
     Dosage: 3 DF, EVERY 6 HOURS
     Dates: start: 20160215, end: 20160302
  3. PERCOCET [Concomitant]
     Active Substance: ACETAMINOPHEN\OXYCODONE HYDROCHLORIDE
     Indication: PAIN
     Dosage: UNK
     Dates: start: 20160215, end: 20160221

REACTIONS (10)
  - Anxiety [Unknown]
  - Feeling cold [Recovered/Resolved]
  - Decreased appetite [Not Recovered/Not Resolved]
  - Feeling hot [Recovered/Resolved]
  - Pollakiuria [Not Recovered/Not Resolved]
  - Eructation [Unknown]
  - Breath odour [Recovered/Resolved]
  - Chills [Recovered/Resolved]
  - Swelling [Unknown]
  - Product use issue [Recovered/Resolved]

NARRATIVE: CASE EVENT DATE: 20160215
